FAERS Safety Report 9654578 (Version 2)
Quarter: 2013Q4

REPORT INFORMATION
  Report Type: Spontaneous
  Country: US (occurrence: US)
  Receive Date: 20131029
  Receipt Date: 20131126
  Transmission Date: 20140711
  Serious: No
  Sender: FDA-Public Use
  Company Number: US-BIOGENIDEC-2013BI085169

PATIENT
  Age: 39 Year
  Sex: Male

DRUGS (2)
  1. TECFIDERA [Suspect]
     Indication: MULTIPLE SCLEROSIS
  2. TECFIDERA [Suspect]
     Indication: MULTIPLE SCLEROSIS
     Route: 048
     Dates: start: 20130823

REACTIONS (6)
  - Hyperhidrosis [Unknown]
  - Influenza like illness [Unknown]
  - Generalised erythema [Unknown]
  - Burning sensation [Unknown]
  - Rash generalised [Unknown]
  - Flushing [Unknown]
